FAERS Safety Report 8459132-3 (Version None)
Quarter: 2012Q2

REPORT INFORMATION
  Report Type: 
  Country: None (occurrence: None)
  Receive Date: 20120622
  Receipt Date: 20120618
  Transmission Date: 20120825
  Serious: Yes (Other)
  Sender: FDA-Public Use
  Company Number: US-BAYER-2012-060076

PATIENT
  Age: 67 Year
  Sex: Male

DRUGS (2)
  1. ACITRETIN [Interacting]
     Indication: PSORIASIS
     Dosage: 25 MG, QD
     Route: 048
  2. CIPROFLOXACIN HCL [Suspect]
     Indication: ARTHRITIS INFECTIVE
     Dosage: 500 MG, BID
     Route: 048
     Dates: start: 20120409

REACTIONS (1)
  - HEPATIC ENZYME INCREASED [None]
